FAERS Safety Report 22076485 (Version 1)
Quarter: 2023Q1

REPORT INFORMATION
  Report Type: Spontaneous
  Country: US (occurrence: US)
  Receive Date: 20230309
  Receipt Date: 20230309
  Transmission Date: 20230418
  Serious: Yes (Other)
  Sender: FDA-Public Use
  Company Number: US-STRIDES ARCOLAB LIMITED-2023SP000856

PATIENT
  Age: 37 Year
  Sex: Female

DRUGS (16)
  1. TACROLIMUS [Suspect]
     Active Substance: TACROLIMUS
     Indication: Benign familial pemphigus
     Dosage: UNK
     Route: 065
  2. PREDNISOLONE [Suspect]
     Active Substance: PREDNISOLONE
     Indication: Benign familial pemphigus
     Dosage: UNK (DOSE TAPERED AND DISCONTINUED)
     Route: 065
  3. CEPHALEXIN [Suspect]
     Active Substance: CEPHALEXIN
     Indication: Benign familial pemphigus
     Dosage: UNK
     Route: 065
  4. DOXYCYCLINE [Suspect]
     Active Substance: DOXYCYCLINE
     Indication: Benign familial pemphigus
     Dosage: UNK
     Route: 065
  5. MINOCYCLINE [Suspect]
     Active Substance: MINOCYCLINE HYDROCHLORIDE
     Indication: Benign familial pemphigus
     Dosage: UNK
     Route: 065
  6. CLOBETASOL [Suspect]
     Active Substance: CLOBETASOL
     Indication: Benign familial pemphigus
     Dosage: UNK
     Route: 065
  7. MUPIROCIN [Suspect]
     Active Substance: MUPIROCIN
     Indication: Benign familial pemphigus
     Dosage: UNK
     Route: 065
  8. VITAMIN D [Suspect]
     Active Substance: VITAMIN D NOS
     Indication: Benign familial pemphigus
     Dosage: UNK
     Route: 048
  9. GLYCOPYRROLATE [Suspect]
     Active Substance: GLYCOPYRROLATE
     Indication: Benign familial pemphigus
     Dosage: UNK
     Route: 065
  10. MAGNESIUM CHLORIDE [Suspect]
     Active Substance: MAGNESIUM CHLORIDE
     Indication: Benign familial pemphigus
     Dosage: UNK
     Route: 065
  11. FLUOROURACIL [Suspect]
     Active Substance: FLUOROURACIL
     Indication: Benign familial pemphigus
     Dosage: UNK
     Route: 061
  12. FLUOCINONIDE [Suspect]
     Active Substance: FLUOCINONIDE
     Indication: Benign familial pemphigus
     Dosage: UNK
     Route: 065
  13. TRIAMCINOLONE [Concomitant]
     Active Substance: TRIAMCINOLONE
     Indication: Benign familial pemphigus
     Dosage: UNK
     Route: 065
  14. FLUCONAZOLE [Concomitant]
     Active Substance: FLUCONAZOLE
     Indication: Benign familial pemphigus
     Dosage: UNK
     Route: 065
  15. ZINC OXIDE [Concomitant]
     Active Substance: ZINC OXIDE
     Indication: Benign familial pemphigus
     Dosage: UNK
     Route: 065
  16. CALCIPOTRIENE [Concomitant]
     Active Substance: CALCIPOTRIENE
     Indication: Benign familial pemphigus
     Dosage: UNK
     Route: 065

REACTIONS (3)
  - Drug ineffective [Unknown]
  - Staphylococcal infection [Unknown]
  - Off label use [Unknown]
